FAERS Safety Report 17509927 (Version 1)
Quarter: 2020Q1

REPORT INFORMATION
  Report Type: Spontaneous
  Country: US (occurrence: US)
  Receive Date: 20200226
  Receipt Date: 20200226
  Transmission Date: 20200409
  Serious: No
  Sender: FDA-Public Use
  Company Number: None

PATIENT
  Age: 3 Year
  Sex: Female

DRUGS (1)
  1. NIVESTYM [Suspect]
     Active Substance: FILGRASTIM-AAFI
     Indication: NEUTROPENIA
     Dosage: ?          OTHER STRENGTH:300MCG/ML;?
     Route: 058
     Dates: start: 20191105

REACTIONS (1)
  - Bone pain [None]

NARRATIVE: CASE EVENT DATE: 20191203
